FAERS Safety Report 4699216-9 (Version None)
Quarter: 2005Q2

REPORT INFORMATION
  Report Type: 
  Country: None (occurrence: None)
  Receive Date: 20050622
  Receipt Date: 20050609
  Transmission Date: 20051028
  Serious: Yes (Other)
  Sender: FDA-Public Use
  Company Number: 2005087524

PATIENT
  Sex: Female

DRUGS (9)
  1. ZOLOFT [Suspect]
     Indication: DEPRESSION
     Dosage: 50 MG (50 MG, 1 IN 1 D)
  2. ALL OTHER THERAPEUTIC PRODUCTS (ALL OTHER THERAPEUTIC PRODUCTS) [Concomitant]
  3. CARTEOLOL (CARTEOLOL) [Concomitant]
  4. ACETYLSALICYLATE LYSINE (ACETYLSALICYLATE LYSINE) [Concomitant]
  5. RAMIPRIL [Concomitant]
  6. NITROGLYCERIN [Concomitant]
  7. FUROSEMIDE [Concomitant]
  8. BROMAZEPAM (BROMAZEPAM) [Concomitant]
  9. NITRAZEPAM [Concomitant]

REACTIONS (1)
  - ANGIONEUROTIC OEDEMA [None]
